FAERS Safety Report 8380175-2 (Version None)
Quarter: 2012Q2

REPORT INFORMATION
  Report Type: 
  Country: None (occurrence: None)
  Receive Date: 20120523
  Receipt Date: 20120515
  Transmission Date: 20120825
  Serious: Yes (Hospitalization, Other)
  Sender: FDA-Public Use
  Company Number: FR-ASTRAZENECA-2012SE19013

PATIENT
  Age: 19 Year
  Sex: Male
  Weight: 95 kg

DRUGS (6)
  1. HEPTAMYL [Concomitant]
     Indication: ORTHOSTATIC HYPOTENSION
     Route: 048
     Dates: start: 20111125, end: 20120323
  2. LEVOTHYROXINE SODIUM [Concomitant]
     Indication: HYPOTHYROIDISM
     Route: 048
     Dates: start: 20120124, end: 20120315
  3. PRAZEPAM [Concomitant]
     Route: 048
     Dates: start: 20110511, end: 20120323
  4. QUETIAPINE FUMARATE [Suspect]
     Route: 048
     Dates: start: 20120315, end: 20120323
  5. QUETIAPINE FUMARATE [Suspect]
     Indication: BIPOLAR DISORDER
     Route: 048
     Dates: start: 20111122, end: 20120315
  6. ESCITALOPRAM [Concomitant]
     Indication: BIPOLAR DISORDER
     Route: 048
     Dates: start: 20110531

REACTIONS (9)
  - BLOOD TRIGLYCERIDES INCREASED [None]
  - INCREASED APPETITE [None]
  - SUICIDAL IDEATION [None]
  - MENTAL DISORDER [None]
  - WEIGHT INCREASED [None]
  - DYSKINESIA [None]
  - BLOOD CHOLESTEROL INCREASED [None]
  - HYPERTHYROIDISM [None]
  - AFFECTIVE DISORDER [None]
